FAERS Safety Report 9954205 (Version 2)
Quarter: 2014Q2

REPORT INFORMATION
  Report Type: Spontaneous
  Country: CL (occurrence: CL)
  Receive Date: 20140304
  Receipt Date: 20140508
  Transmission Date: 20141212
  Serious: Yes (Other)
  Sender: FDA-Public Use
  Company Number: CL-PFIZER INC-2014061370

PATIENT
  Age: 71 Year
  Sex: Female

DRUGS (6)
  1. XALATAN [Suspect]
     Indication: GLAUCOMA
     Dosage: 1 DROP FOR EACH EYE , 1X/DAY
     Route: 047
     Dates: start: 1975
  2. TIOF [Concomitant]
     Dosage: UNK
  3. EUTIROX [Concomitant]
     Indication: HYPOTHYROIDISM
  4. FAMOTIDIN [Concomitant]
     Indication: GASTRITIS
  5. OMEPRAZOLE [Concomitant]
     Indication: GASTRITIS
  6. ATORVASTATIN [Concomitant]
     Dosage: UNK

REACTIONS (2)
  - Cataract [Not Recovered/Not Resolved]
  - Dry eye [Not Recovered/Not Resolved]
